FAERS Safety Report 6406736-5 (Version None)
Quarter: 2009Q4

REPORT INFORMATION
  Report Type: 
  Country: None (occurrence: None)
  Receive Date: 20091005
  Receipt Date: 20091001
  Transmission Date: 20100525
  Serious: Yes (Other)
  Sender: FDA-Public Use
  Company Number: IN-144856

PATIENT
  Sex: Female

DRUGS (2)
  1. WINRHO SDF [Suspect]
     Indication: PURPURA
     Dosage: (50 UG/KG  TOTAL INTRAVENOUS (NOT OTHERWISE SPECIFIED))
     Route: 042
  2. WINRHO SDF [Suspect]
     Indication: THROMBOCYTOPENIC PURPURA
     Dosage: (50 UG/KG  TOTAL INTRAVENOUS (NOT OTHERWISE SPECIFIED))
     Route: 042

REACTIONS (6)
  - ARTHRALGIA [None]
  - CHILLS [None]
  - FLUSHING [None]
  - INFLUENZA LIKE ILLNESS [None]
  - MYALGIA [None]
  - PYREXIA [None]
